FAERS Safety Report 13247668 (Version 3)
Quarter: 2017Q1

REPORT INFORMATION
  Report Type: Spontaneous
  Country: DE (occurrence: DE)
  Receive Date: 20170217
  Receipt Date: 20170307
  Transmission Date: 20170428
  Serious: Yes (Other)
  Sender: FDA-Public Use
  Company Number: DE-BRISTOL-MYERS SQUIBB COMPANY-BMS-2017-013241

PATIENT
  Age: 68 Year
  Sex: Male

DRUGS (1)
  1. NIVOLUMAB [Suspect]
     Active Substance: NIVOLUMAB
     Indication: BRONCHIAL CARCINOMA
     Dosage: NOT PROVIDED
     Route: 065
     Dates: start: 201510

REACTIONS (4)
  - Reactive gastropathy [Unknown]
  - Hypothyroidism [Unknown]
  - Rectal polyp [Unknown]
  - Gastrooesophageal reflux disease [Unknown]
